FAERS Safety Report 9665604 (Version 1)
Quarter: 2013Q4

REPORT INFORMATION
  Report Type: Spontaneous
  Country: US (occurrence: None)
  Receive Date: 20131031
  Receipt Date: 20131031
  Transmission Date: 20140711
  Serious: Yes (Other)
  Sender: FDA-Public Use
  Company Number: None

PATIENT
  Age: 71 Year
  Sex: Female

DRUGS (1)
  1. NORDITROPIN FLEXPRO [Suspect]
     Indication: DWARFISM
     Route: 058
     Dates: start: 20130524, end: 20131001

REACTIONS (2)
  - Hypoaesthesia [None]
  - Carpal tunnel syndrome [None]
